FAERS Safety Report 10217166 (Version 2)
Quarter: 2014Q2

REPORT INFORMATION
  Report Type: Spontaneous
  Country: CN (occurrence: CN)
  Receive Date: 20140604
  Receipt Date: 20140607
  Transmission Date: 20141212
  Serious: Yes (Other)
  Sender: FDA-Public Use
  Company Number: PHHY2014CN064614

PATIENT
  Age: 58 Year
  Sex: Male

DRUGS (2)
  1. INDAPAMIDE [Suspect]
     Indication: HYPERTENSION
     Route: 048
  2. ROSUVASTATIN [Concomitant]
     Indication: HYPERLIPIDAEMIA

REACTIONS (10)
  - Pemphigus [Recovered/Resolved]
  - Erythema [Recovered/Resolved]
  - Pruritus [Recovered/Resolved]
  - Skin erosion [Recovered/Resolved]
  - Skin lesion [Recovered/Resolved]
  - Blister [Recovered/Resolved]
  - Acantholysis [Recovered/Resolved]
  - Lymphocytic infiltration [Recovered/Resolved]
  - Rash [Recovered/Resolved]
  - Pigmentation disorder [Recovered/Resolved]
